FAERS Safety Report 5952854-5 (Version None)
Quarter: 2008Q4

REPORT INFORMATION
  Report Type: 
  Country: None (occurrence: None)
  Receive Date: 20081114
  Receipt Date: 20081110
  Transmission Date: 20090506
  Serious: Yes (Hospitalization)
  Sender: FDA-Public Use
  Company Number: DE-WYE-G02240808

PATIENT
  Sex: Female

DRUGS (5)
  1. LORAZEPAM [Suspect]
     Dosage: 10 TABLETS (OVERDOSE AMOUNT 25 MG)
     Route: 048
     Dates: start: 20080925, end: 20080925
  2. ALCOHOL [Suspect]
     Dosage: OVERDOSE AMOUNT UNKNOWN
     Route: 048
     Dates: start: 20080925, end: 20080925
  3. TEGRETOL [Suspect]
     Dosage: 400 MG (FREQUENCY UNKNOWN)
     Route: 048
  4. VENLAFAXINE HCL [Suspect]
     Dosage: 37.5 MG (FREQUENCY UNKNOWN)
     Route: 048
  5. SEROQUEL [Suspect]
     Dosage: 25 MG (FREQUENCY UNKNOWN)
     Route: 048

REACTIONS (5)
  - BRADYCARDIA [None]
  - DYSARTHRIA [None]
  - INTENTIONAL OVERDOSE [None]
  - SOMNOLENCE [None]
  - SUICIDE ATTEMPT [None]
